FAERS Safety Report 4727460-0 (Version None)
Quarter: 2005Q3

REPORT INFORMATION
  Report Type: 
  Country: None (occurrence: None)
  Receive Date: 20050727
  Receipt Date: 20050727
  Transmission Date: 20060218
  Serious: Yes (Hospitalization)
  Sender: FDA-Public Use
  Company Number: None

PATIENT
  Age: 83 Year
  Sex: Female
  Weight: 90.7 kg

DRUGS (14)
  1. MIDAZOLAM [Suspect]
     Indication: SEDATIVE THERAPY
     Dosage: 0.5 MG
     Dates: start: 20041207
  2. PREVACID [Concomitant]
  3. REGLAN [Concomitant]
  4. HEMOCYTE [Concomitant]
  5. DARVON [Concomitant]
  6. ENOXAPARIN SODIUM [Concomitant]
  7. DILANTIN [Concomitant]
  8. PROCARDIA XL [Concomitant]
  9. TOPROL-XL [Concomitant]
  10. ZESTRIL [Concomitant]
  11. HYDRALAZINE [Concomitant]
  12. LASIX [Concomitant]
  13. CLONIDINE [Concomitant]
  14. ANCEF [Concomitant]

REACTIONS (7)
  - ASPIRATION [None]
  - CEREBROVASCULAR ACCIDENT [None]
  - CHEYNE-STOKES RESPIRATION [None]
  - DYSPHAGIA [None]
  - PROCEDURAL COMPLICATION [None]
  - RESPIRATORY DISTRESS [None]
  - TRANSIENT ISCHAEMIC ATTACK [None]
